FAERS Safety Report 6847404-5 (Version None)
Quarter: 2010Q3

REPORT INFORMATION
  Report Type: 
  Country: None (occurrence: None)
  Receive Date: 20100716
  Receipt Date: 20100709
  Transmission Date: 20110219
  Serious: Yes (Other)
  Sender: FDA-Public Use
  Company Number: US-ELI_LILLY_AND_COMPANY-US201007002711

PATIENT
  Sex: Female

DRUGS (3)
  1. HUMALOG [Suspect]
     Indication: TYPE 2 DIABETES MELLITUS
     Dates: start: 20100601
  2. LANTUS [Concomitant]
     Indication: TYPE 2 DIABETES MELLITUS
     Dosage: 75 U, DAILY (1/D)
     Dates: start: 20100601
  3. BYETTA [Concomitant]

REACTIONS (2)
  - BLOOD GLUCOSE DECREASED [None]
  - CARDIAC OPERATION [None]
